FAERS Safety Report 8618488 (Version 3)
Quarter: 2013Q3

REPORT INFORMATION
  Report Type: Spontaneous
  Country: US (occurrence: US)
  Receive Date: 20120618
  Receipt Date: 20130925
  Transmission Date: 20140515
  Serious: Yes (Hospitalization, Disabling)
  Sender: FDA-Public Use
  Company Number: US-ASTRAZENECA-2012SE35752

PATIENT
  Age: 50 Year
  Sex: Female

DRUGS (20)
  1. NEXIUM [Suspect]
     Indication: GASTRITIS
     Route: 048
     Dates: start: 2005, end: 2008
  2. NEXIUM [Suspect]
     Indication: GASTROOESOPHAGEAL REFLUX DISEASE
     Route: 048
     Dates: start: 2005, end: 2008
  3. NEXIUM [Suspect]
     Indication: GASTRITIS
     Route: 048
     Dates: start: 20070627
  4. NEXIUM [Suspect]
     Indication: GASTROOESOPHAGEAL REFLUX DISEASE
     Route: 048
     Dates: start: 20070627
  5. PROPOXYPHENE [Concomitant]
     Dosage: 100/650 T
     Dates: start: 20070625
  6. LEVAQUIN [Concomitant]
     Dates: start: 20070625
  7. AMITIZA [Concomitant]
     Dates: start: 20070628
  8. ACIPHEX [Concomitant]
     Dates: start: 20070910
  9. CPM/PSE/MSC [Concomitant]
     Dates: start: 20071128
  10. EFFEXOR XR [Concomitant]
     Indication: DEPRESSION
     Dates: start: 20080104
  11. LAMICTAL [Concomitant]
     Indication: MOOD ALTERED
     Dates: start: 20080123
  12. LAMICTAL [Concomitant]
     Indication: MOOD ALTERED
  13. METOPROLOL XL [Concomitant]
     Dates: start: 20080123
  14. PROMETHAZINE [Concomitant]
     Dates: start: 20080123
  15. NADOLOL [Concomitant]
     Indication: MIGRAINE
  16. NARATRIPTAN [Concomitant]
     Indication: MIGRAINE
  17. PRAVASTATIN [Concomitant]
     Indication: BLOOD CHOLESTEROL ABNORMAL
  18. SEROQUEL [Concomitant]
     Indication: INSOMNIA
  19. LASIX [Concomitant]
  20. ESTRADIOL [Concomitant]

REACTIONS (10)
  - Bipolar disorder [Unknown]
  - Impaired work ability [Unknown]
  - Pharyngeal disorder [Unknown]
  - Musculoskeletal disorder [Unknown]
  - Osteoporosis [Unknown]
  - Pathological gambling [Unknown]
  - Foot fracture [Unknown]
  - Arthritis [Unknown]
  - Anxiety [Unknown]
  - Sinusitis [Unknown]
